FAERS Safety Report 11696540 (Version 1)
Quarter: 2015Q4

REPORT INFORMATION
  Report Type: Spontaneous
  Country: AU (occurrence: AU)
  Receive Date: 20151104
  Receipt Date: 20151104
  Transmission Date: 20160304
  Serious: Yes (Other)
  Sender: FDA-Public Use
  Company Number: AU-PFIZER INC-2015368395

PATIENT
  Sex: Female

DRUGS (5)
  1. EFFEXOR XR [Suspect]
     Active Substance: VENLAFAXINE HYDROCHLORIDE
     Dosage: UNK
  2. KOREAN GINSENG /01384001/ [Suspect]
     Active Substance: ASIAN GINSENG
     Dosage: UNK
  3. ST JOHN^S WORT [Suspect]
     Active Substance: ST. JOHN^S WORT
     Dosage: UNK
  4. TURMERIC [Suspect]
     Active Substance: TURMERIC
     Dosage: UNK
  5. CINNAMON. [Suspect]
     Active Substance: CINNAMON
     Dosage: UNK

REACTIONS (12)
  - Drug dependence [Unknown]
  - Electric shock [Unknown]
  - Insomnia [Unknown]
  - Restlessness [Unknown]
  - Head discomfort [Unknown]
  - Agitation [Unknown]
  - Blood glucose fluctuation [Unknown]
  - Paraesthesia [Unknown]
  - Serotonin syndrome [Unknown]
  - Feeling abnormal [Unknown]
  - Headache [Unknown]
  - Heart rate increased [Unknown]
